FAERS Safety Report 5658049-7 (Version None)
Quarter: 2008Q1

REPORT INFORMATION
  Report Type: 
  Country: None (occurrence: None)
  Receive Date: 20080310
  Receipt Date: 20061215
  Transmission Date: 20080703
  Serious: No
  Sender: FDA-Public Use
  Company Number: US-BAYER-200615009BCC

PATIENT
  Age: 75 Year
  Sex: Female
  Weight: 65 kg

DRUGS (4)
  1. ALEVE [Suspect]
     Indication: RESTLESS LEGS SYNDROME
     Dosage: TOTAL DAILY DOSE: 220 MG  UNIT DOSE: 220 MG
     Route: 048
     Dates: start: 20061214
  2. ACETAMINOPHEN AND OXYCODONE HCL [Suspect]
     Indication: RESTLESS LEGS SYNDROME
     Route: 048
  3. LEVAQUIN [Concomitant]
  4. LEVOXYL [Concomitant]

REACTIONS (2)
  - FATIGUE [None]
  - INSOMNIA [None]
